FAERS Safety Report 7929237-1 (Version None)
Quarter: 2011Q4

REPORT INFORMATION
  Report Type: 
  Country: None (occurrence: None)
  Receive Date: 20111121
  Receipt Date: 20111108
  Transmission Date: 20120403
  Serious: Yes (Life-Threatening, Hospitalization)
  Sender: FDA-Public Use
  Company Number: CL-BIOGENIDEC-2011BI041610

PATIENT
  Age: 26 Year
  Sex: Female

DRUGS (3)
  1. ESCITALOPRAM [Concomitant]
     Route: 048
  2. ZOPICLONE [Concomitant]
     Route: 048
  3. TYSABRI [Suspect]
     Indication: MULTIPLE SCLEROSIS
     Route: 042
     Dates: start: 20110902

REACTIONS (2)
  - TUBULOINTERSTITIAL NEPHRITIS [None]
  - ENCEPHALITIS HERPES [None]
